FAERS Safety Report 16315625 (Version 1)
Quarter: 2019Q2

REPORT INFORMATION
  Report Type: Spontaneous
  Country: US (occurrence: US)
  Receive Date: 20190515
  Receipt Date: 20190515
  Transmission Date: 20190711
  Serious: No
  Sender: FDA-Public Use
  Company Number: US-BAYER-2019-095198

PATIENT
  Sex: Female
  Weight: 83.67 kg

DRUGS (5)
  1. LYRICA CR [Suspect]
     Active Substance: PREGABALIN
     Indication: PAIN
     Dosage: 165 MG
     Route: 048
     Dates: start: 20190228
  2. ALEVE [Suspect]
     Active Substance: NAPROXEN SODIUM
  3. TRAMADOL. [Suspect]
     Active Substance: TRAMADOL
  4. METOPRIM [METOPROLOL TARTRATE] [Concomitant]
     Dosage: 25 MG
  5. CLONAZEPAM. [Concomitant]
     Active Substance: CLONAZEPAM
     Dosage: 1 MG

REACTIONS (1)
  - Drug ineffective [Unknown]
